FAERS Safety Report 8105017-1 (Version None)
Quarter: 2012Q1

REPORT INFORMATION
  Report Type: 
  Country: None (occurrence: None)
  Receive Date: 20120201
  Receipt Date: 20120123
  Transmission Date: 20120608
  Serious: Yes (Other)
  Sender: FDA-Public Use
  Company Number: TW-GLAXOSMITHKLINE-B0778313A

PATIENT
  Age: 56 Year
  Sex: Female

DRUGS (4)
  1. QUETIAPINE [Suspect]
  2. VALPROIC ACID [Suspect]
     Dosage: 500MG PER DAY
  3. LAMOTRIGINE [Suspect]
     Indication: BIPOLAR I DISORDER
     Dosage: 150MG PER DAY
  4. ESTAZOLAM [Concomitant]

REACTIONS (9)
  - GENERALISED ERYTHEMA [None]
  - NEUTROPENIA [None]
  - STEVENS-JOHNSON SYNDROME [None]
  - MALAISE [None]
  - PYREXIA [None]
  - THROMBOCYTOPENIA [None]
  - MOUTH ULCERATION [None]
  - UPPER RESPIRATORY TRACT INFECTION [None]
  - PRODUCTIVE COUGH [None]
